FAERS Safety Report 8345146-0 (Version None)
Quarter: 2012Q2

REPORT INFORMATION
  Report Type: 
  Country: None (occurrence: None)
  Receive Date: 20120508
  Receipt Date: 20120423
  Transmission Date: 20120825
  Serious: No
  Sender: FDA-Public Use
  Company Number: US-ROXANE LABORATORIES, INC.-2012-RO-01102RO

PATIENT
  Sex: Female

DRUGS (10)
  1. TOPIRAMATE [Concomitant]
     Dosage: 150 MG
  2. LITHIUM CARBONATE [Suspect]
     Indication: DEPRESSION
     Dosage: 1200 MG
     Route: 048
     Dates: start: 20090101
  3. LASIX [Concomitant]
  4. MIRAPEX [Concomitant]
     Dosage: 1 MG
  5. CYTOMEL [Concomitant]
     Indication: HYPOTHYROIDISM
     Dosage: 5 MCG
  6. NEXIUM [Concomitant]
     Indication: GASTROOESOPHAGEAL REFLUX DISEASE
     Dosage: 40 MG
  7. LITHIUM CARBONATE [Suspect]
     Indication: BIPOLAR DISORDER
  8. IMITREX [Concomitant]
     Indication: MIGRAINE
  9. CELEXA [Concomitant]
     Dosage: 10 MG
  10. SYNTHROID [Concomitant]
     Indication: HYPOTHYROIDISM

REACTIONS (6)
  - OEDEMA PERIPHERAL [None]
  - LOSS OF CONSCIOUSNESS [None]
  - DIARRHOEA [None]
  - HEADACHE [None]
  - FALL [None]
  - TREMOR [None]
